FAERS Safety Report 24012576 (Version 1)
Quarter: 2024Q2

REPORT INFORMATION
  Report Type: Report from Study
  Country: US (occurrence: US)
  Receive Date: 20240626
  Receipt Date: 20240626
  Transmission Date: 20240716
  Serious: No
  Sender: FDA-Public Use
  Company Number: US-SANDOZ-SDZ2024US046506

PATIENT
  Age: 15 Year
  Sex: Male

DRUGS (2)
  1. OMNITROPE [Suspect]
     Active Substance: SOMATROPIN
     Indication: Short stature
     Dosage: 0.56 ML, QD
     Route: 058
     Dates: start: 20240430
  2. OMNITROPE [Suspect]
     Active Substance: SOMATROPIN
     Indication: Short stature
     Dosage: 0.56 ML, QD
     Route: 058
     Dates: start: 20240430

REACTIONS (9)
  - Injection site erythema [Recovered/Resolved]
  - Injection site mass [Recovered/Resolved]
  - Injection site pain [Recovered/Resolved]
  - Incorrect dose administered [Unknown]
  - Product availability issue [Unknown]
  - Product dose omission issue [Unknown]
  - Product quality issue [Unknown]
  - Product storage error [Unknown]
  - Needle issue [Unknown]

NARRATIVE: CASE EVENT DATE: 20240430
